FAERS Safety Report 4583818-4 (Version None)
Quarter: 2005Q1

REPORT INFORMATION
  Report Type: 
  Country: None (occurrence: None)
  Receive Date: 20050216
  Receipt Date: 20050125
  Transmission Date: 20050727
  Serious: Yes (Other)
  Sender: FDA-Public Use
  Company Number: PHFR2005GB00763

PATIENT
  Age: 14 Year
  Sex: Male

DRUGS (2)
  1. RITALIN [Suspect]
     Indication: ABNORMAL BEHAVIOUR
     Dosage: 45-65 MG/DAY
  2. RISPERIDONE [Concomitant]

REACTIONS (1)
  - RECTAL HAEMORRHAGE [None]
